FAERS Safety Report 24253234 (Version 1)
Quarter: 2024Q3

REPORT INFORMATION
  Report Type: Report from Study
  Country: ES (occurrence: ES)
  Receive Date: 20240827
  Receipt Date: 20240827
  Transmission Date: 20241017
  Serious: Yes (Life-Threatening, Hospitalization)
  Sender: ACCORD
  Company Number: None

PATIENT
  Age: 48 Year
  Sex: Female

DRUGS (6)
  1. QUETIAPINE [Interacting]
     Active Substance: QUETIAPINE
     Indication: Intentional overdose
     Dates: start: 20240627, end: 20240627
  2. ACETAMINOPHEN [Interacting]
     Active Substance: ACETAMINOPHEN
     Indication: Intentional overdose
     Dates: start: 20240627, end: 20240627
  3. LORMETAZEPAM [Interacting]
     Active Substance: LORMETAZEPAM
     Indication: Intentional overdose
     Dates: start: 20240627, end: 20240627
  4. HALOPERIDOL [Interacting]
     Active Substance: HALOPERIDOL
     Indication: Intentional overdose
     Dates: start: 20240627, end: 20240627
  5. LAMOTRIGINE [Interacting]
     Active Substance: LAMOTRIGINE
     Indication: Intentional overdose
     Dates: start: 20240627, end: 20240627
  6. CLONAZEPAM [Interacting]
     Active Substance: CLONAZEPAM
     Indication: Intentional overdose
     Dates: start: 20240627, end: 20240627

REACTIONS (2)
  - Depressed level of consciousness [Recovered/Resolved]
  - Intentional overdose [Recovered/Resolved]

NARRATIVE: CASE EVENT DATE: 20240627
